FAERS Safety Report 5923711-5 (Version None)
Quarter: 2008Q4

REPORT INFORMATION
  Report Type: 
  Country: None (occurrence: None)
  Receive Date: 20081020
  Receipt Date: 20081017
  Transmission Date: 20090506
  Serious: Yes (Hospitalization)
  Sender: FDA-Public Use
  Company Number: B0385659A

PATIENT
  Age: 42 Year
  Sex: Male

DRUGS (17)
  1. EPIVIR [Suspect]
     Indication: HIV INFECTION
     Dosage: 150MG TWICE PER DAY
     Route: 048
     Dates: start: 20040412, end: 20060217
  2. ZERIT [Suspect]
     Indication: HIV INFECTION
     Dosage: 80MG PER DAY
     Route: 048
     Dates: start: 20040412, end: 20050403
  3. STOCRIN [Suspect]
     Indication: HIV INFECTION
     Dosage: 600MG PER DAY
     Route: 048
     Dates: start: 20040412
  4. EPZICOM [Suspect]
     Indication: ACQUIRED IMMUNODEFICIENCY SYNDROME
     Route: 048
     Dates: start: 20060218
  5. SULFADOXINE-PYRIMETHAMINE [Concomitant]
     Indication: CEREBRAL TOXOPLASMOSIS
     Route: 065
     Dates: start: 20040401
  6. LEUCOVORIN CALCIUM [Concomitant]
     Indication: CEREBRAL TOXOPLASMOSIS
     Route: 065
     Dates: start: 20040401
  7. DALACIN [Concomitant]
     Indication: CEREBRAL TOXOPLASMOSIS
     Route: 065
     Dates: start: 20040401
  8. FOLIAMIN [Concomitant]
     Indication: CEREBRAL TOXOPLASMOSIS
     Dosage: 10MG PER DAY
     Route: 065
     Dates: start: 20050125
  9. DALACIN [Concomitant]
     Dates: start: 20040401, end: 20040408
  10. LANSOPRAZOLE [Concomitant]
     Indication: GASTRIC ULCER
     Dosage: 30MG PER DAY
     Route: 048
     Dates: start: 20060330
  11. NU-LOTAN [Concomitant]
     Indication: HYPERTENSION
     Dosage: 50MG PER DAY
     Route: 048
  12. NORVASC [Concomitant]
     Indication: HYPERTENSION
     Dosage: 5MG PER DAY
     Route: 048
  13. OMEPRAZOLE [Concomitant]
     Dosage: 20MG PER DAY
     Dates: start: 20071002
  14. CHINESE MEDICINE [Concomitant]
     Indication: CONSTIPATION
     Dosage: 7500MG PER DAY
     Route: 048
     Dates: start: 20071002, end: 20071106
  15. COLONEL [Concomitant]
     Indication: CONSTIPATION
     Dosage: 1500MG PER DAY
     Route: 048
     Dates: start: 20071002
  16. SENNOSIDE [Concomitant]
     Indication: CONSTIPATION
     Dosage: 48MG PER DAY
     Route: 048
     Dates: start: 20071002
  17. ALOSITOL [Concomitant]
     Dosage: 100MG PER DAY
     Route: 048
     Dates: start: 20070619

REACTIONS (4)
  - HAEMATURIA [None]
  - LACTIC ACIDOSIS [None]
  - PROTEINURIA [None]
  - RENAL DISORDER [None]
